FAERS Safety Report 5027407-6 (Version None)
Quarter: 2006Q2

REPORT INFORMATION
  Report Type: 
  Country: None (occurrence: None)
  Receive Date: 20060501
  Receipt Date: 20060216
  Transmission Date: 20061013
  Serious: No
  Sender: FDA-Public Use
  Company Number: 200611010BWH

PATIENT
  Age: 68 Year
  Sex: Female
  Weight: 58.0604 kg

DRUGS (11)
  1. NEXAVAR [Suspect]
     Indication: METASTASES TO BONE
     Dosage: SEE IMAGE
     Route: 048
     Dates: start: 20060130, end: 20060210
  2. NEXAVAR [Suspect]
     Indication: METASTASES TO LUNG
     Dosage: SEE IMAGE
     Route: 048
     Dates: start: 20060130, end: 20060210
  3. NEXAVAR [Suspect]
     Indication: METASTATIC RENAL CELL CARCINOMA
     Dosage: SEE IMAGE
     Route: 048
     Dates: start: 20060130, end: 20060210
  4. NEXAVAR [Suspect]
     Indication: METASTASES TO BONE
     Dosage: SEE IMAGE
     Route: 048
     Dates: start: 20060211
  5. NEXAVAR [Suspect]
     Indication: METASTASES TO LUNG
     Dosage: SEE IMAGE
     Route: 048
     Dates: start: 20060211
  6. NEXAVAR [Suspect]
     Indication: METASTATIC RENAL CELL CARCINOMA
     Dosage: SEE IMAGE
     Route: 048
     Dates: start: 20060211
  7. HYDROXYUREA [Concomitant]
  8. WELLBUTRIN [Concomitant]
  9. ZETIA [Concomitant]
  10. ASPIRIN [Concomitant]
  11. CALCIUM GLUCONATE [Concomitant]

REACTIONS (11)
  - BODY TEMPERATURE INCREASED [None]
  - CHILLS [None]
  - HYPOTRICHOSIS [None]
  - INFLUENZA LIKE ILLNESS [None]
  - MALAISE [None]
  - NAUSEA [None]
  - PAIN IN EXTREMITY [None]
  - RASH GENERALISED [None]
  - SKIN EXFOLIATION [None]
  - TREMOR [None]
  - VOMITING [None]
